FAERS Safety Report 7044049-1 (Version None)
Quarter: 2010Q4

REPORT INFORMATION
  Report Type: 
  Country: None (occurrence: None)
  Receive Date: 20101013
  Receipt Date: 20101001
  Transmission Date: 20110411
  Serious: Yes (Other)
  Sender: FDA-Public Use
  Company Number: US-PFIZER INC-2010125676

PATIENT
  Sex: Female
  Weight: 70.295 kg

DRUGS (8)
  1. TOVIAZ [Interacting]
     Indication: HYPERTONIC BLADDER
     Dosage: 4 MG, DAILY
     Route: 048
     Dates: start: 20100901, end: 20101001
  2. VESICARE [Suspect]
  3. PLAVIX [Concomitant]
     Dosage: UNK
  4. ACETYLSALICYLIC ACID [Concomitant]
     Dosage: UNK
  5. DIGOXIN [Concomitant]
     Dosage: UNK
  6. SYNTHROID [Concomitant]
     Dosage: UNK
  7. ALLOPURINOL [Concomitant]
     Dosage: UNK
  8. ZYRTEC [Concomitant]
     Indication: HYPERSENSITIVITY
     Dosage: UNK

REACTIONS (4)
  - BALANCE DISORDER [None]
  - OEDEMA PERIPHERAL [None]
  - VISUAL IMPAIRMENT [None]
  - WEIGHT INCREASED [None]
